FAERS Safety Report 9031371 (Version 1)
Quarter: 2013Q1

REPORT INFORMATION
  Report Type: Spontaneous
  Country: US (occurrence: US)
  Receive Date: 20130124
  Receipt Date: 20130124
  Transmission Date: 20140127
  Serious: Yes (Death, Other)
  Sender: FDA-Public Use
  Company Number: PHHY2013US006225

PATIENT
  Age: 32 Year
  Sex: Male

DRUGS (3)
  1. DICLOFENAC [Suspect]
  2. FENTANYL [Suspect]
  3. ETHANOL [Suspect]

REACTIONS (3)
  - Death [Fatal]
  - Cardiac arrest [Unknown]
  - Respiratory arrest [Unknown]
